FAERS Safety Report 21044862 (Version 1)
Quarter: 2022Q3

REPORT INFORMATION
  Report Type: Spontaneous
  Country: US (occurrence: US)
  Receive Date: 20220705
  Receipt Date: 20220705
  Transmission Date: 20221027
  Serious: No
  Sender: FDA-Public Use
  Company Number: US-LUNDBECK-DKLU3049390

PATIENT
  Age: 27 Year
  Sex: Female

DRUGS (2)
  1. ONFI [Suspect]
     Active Substance: CLOBAZAM
     Indication: Lennox-Gastaut syndrome
     Dosage: AT BEDTIME
     Route: 048
     Dates: start: 20180209
  2. ONFI [Suspect]
     Active Substance: CLOBAZAM
     Dosage: AT BEDTIME
     Route: 048

REACTIONS (1)
  - Intentional underdose [Unknown]
